FAERS Safety Report 26144388 (Version 1)
Quarter: 2025Q4

REPORT INFORMATION
  Report Type: Spontaneous
  Country: US (occurrence: US)
  Receive Date: 20251211
  Receipt Date: 20251211
  Transmission Date: 20260118
  Serious: Yes (Life-Threatening)
  Sender: CELLTRION
  Company Number: US-CELLTRION INC.-2024US033541

PATIENT

DRUGS (1)
  1. RITUXIMAB [Suspect]
     Active Substance: RITUXIMAB
     Indication: Granulomatosis with polyangiitis

REACTIONS (1)
  - Ureaplasma infection [Recovered/Resolved]

NARRATIVE: CASE EVENT DATE: 20220501
